FAERS Safety Report 25527002 (Version 1)
Quarter: 2025Q3

REPORT INFORMATION
  Report Type: Spontaneous
  Country: EU (occurrence: EU)
  Receive Date: 20250708
  Receipt Date: 20250708
  Transmission Date: 20251021
  Serious: Yes (Hospitalization)
  Sender: JOHNSON AND JOHNSON
  Company Number: EU-JNJFOC-20250702015

PATIENT
  Sex: Female

DRUGS (6)
  1. SPRAVATO [Suspect]
     Active Substance: ESKETAMINE
     Indication: Depression
     Dosage: FIRST VISIT
     Route: 045
     Dates: start: 2025
  2. SPRAVATO [Suspect]
     Active Substance: ESKETAMINE
     Dosage: SECOND WEEK
     Route: 045
     Dates: start: 2025
  3. SPRAVATO [Suspect]
     Active Substance: ESKETAMINE
     Dosage: THIRD WEEK
     Route: 045
     Dates: start: 2025
  4. DULOXETINE [Concomitant]
     Active Substance: DULOXETINE
     Indication: Product used for unknown indication
  5. OLANZAPINE [Concomitant]
     Active Substance: OLANZAPINE
     Indication: Product used for unknown indication
  6. ALPRAZOLAM [Concomitant]
     Active Substance: ALPRAZOLAM
     Indication: Product used for unknown indication

REACTIONS (3)
  - Suicidal ideation [Unknown]
  - Psychotic disorder [Unknown]
  - Sedation [Unknown]

NARRATIVE: CASE EVENT DATE: 20250101
